FAERS Safety Report 7437428-1 (Version None)
Quarter: 2011Q2

REPORT INFORMATION
  Report Type: 
  Country: None (occurrence: None)
  Receive Date: 20110426
  Receipt Date: 20100623
  Transmission Date: 20111010
  Serious: No
  Sender: FDA-Public Use
  Company Number: US-PFIZER INC-2010053158

PATIENT
  Sex: Female

DRUGS (2)
  1. ESTRING [Suspect]
     Indication: VULVOVAGINAL DRYNESS
     Dosage: 2 MG, UNK
     Dates: start: 20081029
  2. ESTRING [Suspect]
     Indication: ATROPHY
     Dosage: 2 MG, UNK
     Dates: start: 20100206, end: 20100420

REACTIONS (1)
  - DRUG INEFFECTIVE [None]
